FAERS Safety Report 5764772-6 (Version None)
Quarter: 2008Q2

REPORT INFORMATION
  Report Type: 
  Country: None (occurrence: None)
  Receive Date: 20080611
  Receipt Date: 20080603
  Transmission Date: 20081010
  Serious: Yes (Hospitalization)
  Sender: FDA-Public Use
  Company Number: PHHO2008CZ07098

PATIENT
  Sex: Male
  Weight: 73 kg

DRUGS (3)
  1. TASIGNA [Suspect]
     Indication: CHRONIC MYELOID LEUKAEMIA
     Dosage: 400 MG, BID
     Route: 048
     Dates: start: 20070524
  2. ALLOPURINOL [Concomitant]
     Indication: PROPHYLAXIS
  3. DIAZEPAM [Concomitant]

REACTIONS (5)
  - DIABETIC COMA [None]
  - DIABETIC KETOACIDOSIS [None]
  - FALL [None]
  - LOSS OF CONSCIOUSNESS [None]
  - SUBDURAL HAEMATOMA [None]
